FAERS Safety Report 5702597-8 (Version None)
Quarter: 2008Q2

REPORT INFORMATION
  Report Type: 
  Country: None (occurrence: None)
  Receive Date: 20080410
  Receipt Date: 20080410
  Transmission Date: 20081010
  Serious: Yes (Other)
  Sender: FDA-Public Use
  Company Number: None

PATIENT
  Age: 50 Year
  Sex: Male
  Weight: 65.7716 kg

DRUGS (3)
  1. HYDROCODONE BITARTRATE [Suspect]
     Indication: NERVE COMPRESSION
     Dosage: 1 TO 2  6 HOURS PO
     Route: 048
     Dates: start: 20080327, end: 20080405
  2. HYDROCODONE BITARTRATE [Suspect]
     Indication: SPINAL OSTEOARTHRITIS
     Dosage: 1 TO 2  6 HOURS PO
     Route: 048
     Dates: start: 20080327, end: 20080405
  3. LORCET-HD [Suspect]

REACTIONS (7)
  - CONDITION AGGRAVATED [None]
  - DRUG INEFFECTIVE [None]
  - HEADACHE [None]
  - HYPERTENSION [None]
  - PHARMACEUTICAL PRODUCT COMPLAINT [None]
  - PRURITUS [None]
  - RASH [None]
